FAERS Safety Report 5222204-0 (Version None)
Quarter: 2007Q1

REPORT INFORMATION
  Report Type: 
  Country: None (occurrence: None)
  Receive Date: 20070129
  Receipt Date: 20061003
  Transmission Date: 20070707
  Serious: No
  Sender: FDA-Public Use
  Company Number: US-GLAXOSMITHKLINE-A0620998A

PATIENT
  Age: 27 Year
  Sex: Female
  Weight: 70.5 kg

DRUGS (1)
  1. WELLBUTRIN [Suspect]
     Indication: DRUG USE FOR UNKNOWN INDICATION
     Route: 048

REACTIONS (5)
  - DRUG ADMINISTRATION ERROR [None]
  - FEELING JITTERY [None]
  - MENTAL IMPAIRMENT [None]
  - VISION BLURRED [None]
  - VISUAL DISTURBANCE [None]
